FAERS Safety Report 7389380-5 (Version None)
Quarter: 2011Q2

REPORT INFORMATION
  Report Type: 
  Country: None (occurrence: None)
  Receive Date: 20110401
  Receipt Date: 20110328
  Transmission Date: 20111010
  Serious: Yes (Hospitalization)
  Sender: FDA-Public Use
  Company Number: B0709702A

PATIENT
  Sex: Male
  Weight: 82 kg

DRUGS (51)
  1. GRAN [Concomitant]
     Route: 058
     Dates: start: 20100528, end: 20100602
  2. MAGLAX [Concomitant]
     Route: 048
     Dates: start: 20100507
  3. CHLOR-TRIMETON [Concomitant]
     Route: 042
  4. MEROPEN [Concomitant]
     Route: 042
  5. BUSCOPAN [Concomitant]
     Route: 042
  6. PRODIF [Concomitant]
     Route: 042
  7. ALKERAN [Suspect]
     Indication: STEM CELL TRANSPLANT
     Dosage: 260MG PER DAY
     Route: 042
     Dates: start: 20100512, end: 20100512
  8. GRAN [Concomitant]
     Route: 058
     Dates: start: 20100529, end: 20100603
  9. POLYMYXIN-B-SULFATE [Concomitant]
     Route: 048
     Dates: start: 20100507
  10. FLOMAX [Concomitant]
     Route: 048
  11. SOLU-CORTEF [Concomitant]
     Route: 042
  12. FULCALIQ [Concomitant]
     Route: 042
  13. TIENAM [Concomitant]
     Route: 042
  14. VEPESID [Concomitant]
     Indication: STEM CELL TRANSPLANT
     Dosage: 380MG PER DAY
     Route: 042
     Dates: start: 20100508, end: 20100511
  15. DIFLUCAN [Concomitant]
     Route: 048
     Dates: start: 20100506
  16. GASTER D [Concomitant]
     Route: 048
     Dates: start: 20100507
  17. MEYLON [Concomitant]
     Route: 042
  18. TPN ELECTROLYTES IN PLASTIC CONTAINER [Concomitant]
     Route: 042
  19. GRAN [Concomitant]
     Route: 058
     Dates: start: 20100515, end: 20100516
  20. DEPAS [Concomitant]
     Route: 048
     Dates: start: 20100511
  21. NELBON [Concomitant]
     Dosage: 5MG PER DAY
     Route: 048
  22. FUNGUARD [Suspect]
     Route: 042
  23. CYLOCIDE [Concomitant]
     Indication: STEM CELL TRANSPLANT
     Dosage: 760MG PER DAY
     Route: 042
     Dates: start: 20100508, end: 20100511
  24. NEUTROGIN [Concomitant]
     Dosage: 250MCG PER DAY
     Dates: start: 20100517, end: 20100602
  25. ZOVIRAX [Concomitant]
     Dosage: 1000MG PER DAY
     Route: 048
     Dates: start: 20100506
  26. ALOSITOL [Concomitant]
     Route: 048
     Dates: start: 20100507
  27. FRANDOL S [Concomitant]
     Dosage: 1IUAX PER DAY
     Route: 061
     Dates: start: 20100511
  28. CONTOMIN [Concomitant]
     Route: 048
  29. PHENOTHIAZINE [Concomitant]
     Dosage: 15MG PER DAY
     Route: 048
  30. SANMEL [Concomitant]
     Route: 048
  31. SOLULACT [Concomitant]
     Route: 042
  32. SOLDEM 3A [Concomitant]
     Route: 042
  33. FLURBIPROFEN [Concomitant]
     Route: 042
  34. DALACIN [Suspect]
     Route: 042
  35. DEPAS [Concomitant]
     Route: 048
     Dates: start: 20100512
  36. AKINETON [Concomitant]
     Dosage: 2MG PER DAY
     Route: 048
  37. ENSURE [Concomitant]
     Dosage: 750ML PER DAY
     Route: 048
  38. HAPTOGLOBIN [Concomitant]
     Route: 042
  39. GRAN [Concomitant]
     Route: 058
     Dates: start: 20100521, end: 20100524
  40. LENDORMIN [Concomitant]
     Route: 048
  41. BAKTAR [Concomitant]
     Route: 048
  42. VFEND [Concomitant]
     Route: 048
  43. LACTEC-G [Concomitant]
     Route: 042
  44. GENTACIN [Suspect]
     Route: 042
  45. CYMERIN [Concomitant]
     Indication: STEM CELL TRANSPLANT
     Dosage: 470MG PER DAY
     Route: 042
     Dates: start: 20100507, end: 20100508
  46. BACTRIM [Concomitant]
     Route: 048
     Dates: start: 20100507
  47. HIBERNA [Concomitant]
     Dosage: 25MG PER DAY
     Route: 048
  48. SEROQUEL [Concomitant]
     Route: 048
  49. CODEINE PHOSPHATE [Concomitant]
     Route: 048
  50. LOXONIN [Concomitant]
     Route: 048
  51. MAXIPIME [Concomitant]
     Route: 042

REACTIONS (1)
  - PNEUMONIA [None]
